FAERS Safety Report 5258174-9 (Version None)
Quarter: 2007Q1

REPORT INFORMATION
  Report Type: 
  Country: None (occurrence: None)
  Receive Date: 20070307
  Receipt Date: 20070228
  Transmission Date: 20070707
  Serious: Yes (Other)
  Sender: FDA-Public Use
  Company Number: CA-ABBOTT-07P-028-0359520-00

PATIENT
  Age: 40 Year
  Sex: Female

DRUGS (4)
  1. SYNTHROID [Suspect]
     Indication: HYPOTHYROIDISM
     Route: 048
     Dates: start: 20070210
  2. SYNTHROID [Suspect]
     Route: 048
  3. VITAMIN CAP [Concomitant]
     Indication: DRUG USE FOR UNKNOWN INDICATION
  4. PROGESTERONE [Concomitant]
     Indication: CONTRACEPTION
     Dosage: INTRA-UTERO RING
     Route: 015
     Dates: start: 20061201

REACTIONS (7)
  - ANAL DISCOMFORT [None]
  - BLOOD PRESSURE INCREASED [None]
  - COLD SWEAT [None]
  - HAEMORRHOIDS [None]
  - NAUSEA [None]
  - PALPITATIONS [None]
  - POLLAKIURIA [None]
